FAERS Safety Report 14528923 (Version 5)
Quarter: 2019Q1

REPORT INFORMATION
  Report Type: Spontaneous
  Country: US (occurrence: US)
  Receive Date: 20180214
  Receipt Date: 20190326
  Transmission Date: 20190417
  Serious: Yes (Other)
  Sender: FDA-Public Use
  Company Number: US-ALEXION PHARMACEUTICALS INC.-A201800756

PATIENT
  Sex: Female

DRUGS (1)
  1. SOLIRIS [Suspect]
     Active Substance: ECULIZUMAB
     Indication: PAROXYSMAL NOCTURNAL HAEMOGLOBINURIA
     Dosage: UNK
     Route: 042
     Dates: start: 200711

REACTIONS (7)
  - Thrombosis [Unknown]
  - Epistaxis [Unknown]
  - Nasal congestion [Unknown]
  - Fatigue [Unknown]
  - Neuropathy peripheral [Unknown]
  - Nasal dryness [Unknown]
  - Dizziness [Unknown]

NARRATIVE: CASE EVENT DATE: 2011
